FAERS Safety Report 19821262 (Version 1)
Quarter: 2021Q3

REPORT INFORMATION
  Report Type: Spontaneous
  Country: US (occurrence: US)
  Receive Date: 20210913
  Receipt Date: 20210913
  Transmission Date: 20211014
  Serious: Yes (Death, Other)
  Sender: FDA-Public Use
  Company Number: None

PATIENT
  Age: 53 Year
  Sex: Male
  Weight: 117 kg

DRUGS (1)
  1. BARICITINIB. [Suspect]
     Active Substance: BARICITINIB
     Indication: COVID-19
     Route: 048
     Dates: start: 20210831, end: 20210910

REACTIONS (5)
  - White blood cell count increased [None]
  - Superinfection [None]
  - Bacterial infection [None]
  - Renal impairment [None]
  - Electrolyte imbalance [None]

NARRATIVE: CASE EVENT DATE: 20210912
